FAERS Safety Report 12557752 (Version 1)
Quarter: 2016Q3

REPORT INFORMATION
  Report Type: Spontaneous
  Country: BR (occurrence: BR)
  Receive Date: 20160714
  Receipt Date: 20160714
  Transmission Date: 20161109
  Serious: Yes (Other)
  Sender: FDA-Public Use
  Company Number: BR-PFIZER INC-2016341853

PATIENT
  Age: 75 Year
  Sex: Male

DRUGS (1)
  1. FRONTAL XR [Suspect]
     Active Substance: ALPRAZOLAM
     Dosage: STRENGTH 0.5 MG 2 TABLETS
     Dates: start: 2010

REACTIONS (7)
  - Hypersensitivity [Not Recovered/Not Resolved]
  - Drug dependence [Unknown]
  - Vascular occlusion [Unknown]
  - Cardiac disorder [Unknown]
  - Mental disorder [Unknown]
  - Diabetes mellitus [Not Recovered/Not Resolved]
  - Asthma [Not Recovered/Not Resolved]
